FAERS Safety Report 23293960 (Version 1)
Quarter: 2023Q4

REPORT INFORMATION
  Report Type: Spontaneous
  Country: US (occurrence: US)
  Receive Date: 20231213
  Receipt Date: 20231213
  Transmission Date: 20240110
  Serious: Yes (Other)
  Sender: FDA-Public Use
  Company Number: US-BIOVITRUM-2023-US-020221

PATIENT
  Sex: Male

DRUGS (1)
  1. GAMIFANT [Suspect]
     Active Substance: EMAPALUMAB-LZSG
     Indication: Product used for unknown indication
     Dosage: 2-3 MG/KG

REACTIONS (4)
  - Limb discomfort [Unknown]
  - Neuropathy peripheral [Unknown]
  - Balance disorder [Unknown]
  - Condition aggravated [Unknown]
